FAERS Safety Report 8560830-1 (Version None)
Quarter: 2012Q3

REPORT INFORMATION
  Report Type: 
  Country: None (occurrence: None)
  Receive Date: 20120802
  Receipt Date: 20120719
  Transmission Date: 20120928
  Serious: Yes (Other)
  Sender: FDA-Public Use
  Company Number: JP-ROCHE-1095711

PATIENT

DRUGS (1)
  1. ACTEMRA [Suspect]
     Indication: AMYLOIDOSIS
     Route: 065

REACTIONS (3)
  - GASTROINTESTINAL PERFORATION [None]
  - CELLULITIS [None]
  - PROTEINURIA [None]
